FAERS Safety Report 7595729-0 (Version None)
Quarter: 2011Q3

REPORT INFORMATION
  Report Type: 
  Country: None (occurrence: None)
  Receive Date: 20110707
  Receipt Date: 20110624
  Transmission Date: 20111222
  Serious: Yes (Hospitalization, Other)
  Sender: FDA-Public Use
  Company Number: US-ELI_LILLY_AND_COMPANY-US201107000182

PATIENT
  Age: 65 Year
  Sex: Female

DRUGS (13)
  1. ZOLOFT [Concomitant]
     Route: 065
  2. FUROSEMIDE [Concomitant]
  3. PREDNISONE [Concomitant]
  4. FORTEO [Suspect]
     Indication: OSTEOPENIA
     Dosage: 20 UG, QD
     Route: 065
     Dates: start: 20110101
  5. XANAX [Concomitant]
     Route: 065
  6. TRICOR [Concomitant]
  7. LEVOTHYROXINE SODIUM [Concomitant]
  8. TOPROL-XL [Concomitant]
  9. PRAVASTATIN [Concomitant]
  10. FLEXERIL [Concomitant]
  11. PRILOSEC [Concomitant]
  12. REGLAN [Concomitant]
     Dosage: UNK, PRN
  13. CYCLOSPORINE [Concomitant]
     Dosage: UNK UNK, BID
     Route: 065

REACTIONS (7)
  - INFLUENZA [None]
  - LOSS OF CONSCIOUSNESS [None]
  - BONE PAIN [None]
  - OEDEMA PERIPHERAL [None]
  - SPINAL FRACTURE [None]
  - MUSCULOSKELETAL CHEST PAIN [None]
  - FALL [None]
